FAERS Safety Report 7738032-8 (Version None)
Quarter: 2011Q3

REPORT INFORMATION
  Report Type: 
  Country: None (occurrence: None)
  Receive Date: 20110908
  Receipt Date: 20110829
  Transmission Date: 20111222
  Serious: Yes (Other)
  Sender: FDA-Public Use
  Company Number: US-BAYER-2011-074829

PATIENT
  Age: 14 Year
  Sex: Female
  Weight: 72.562 kg

DRUGS (4)
  1. YASMIN [Suspect]
     Dosage: UNK
     Dates: start: 20100828, end: 20100923
  2. PROAIR HFA [Concomitant]
     Indication: ASTHMA
  3. YAZ [Suspect]
     Indication: CONTRACEPTION
     Dosage: UNK
     Dates: start: 20100828, end: 20100923
  4. YAZ [Suspect]
     Indication: ACNE

REACTIONS (8)
  - DEEP VEIN THROMBOSIS [None]
  - THROMBOSIS [None]
  - FEAR [None]
  - INJURY [None]
  - EMOTIONAL DISTRESS [None]
  - ANXIETY [None]
  - PSYCHIATRIC SYMPTOM [None]
  - PAIN [None]
